FAERS Safety Report 6722906-0 (Version None)
Quarter: 2010Q2

REPORT INFORMATION
  Report Type: 
  Country: None (occurrence: None)
  Receive Date: 20100511
  Receipt Date: 20100427
  Transmission Date: 20101027
  Serious: Yes (Hospitalization)
  Sender: FDA-Public Use
  Company Number: 230207J09CAN

PATIENT
  Age: 49 Year
  Sex: Female

DRUGS (2)
  1. REBIF [Suspect]
     Dosage: 22 MCG, 3 IN 1 WK
     Dates: start: 20080104, end: 20090302
  2. REBIF [Suspect]
     Dosage: 22 MCG, 3 IN 1 WK
     Dates: start: 20090304

REACTIONS (5)
  - BLOOD GLUCOSE INCREASED [None]
  - HYPOAESTHESIA ORAL [None]
  - INJECTION SITE ERYTHEMA [None]
  - INJECTION SITE PAIN [None]
  - MULTIPLE SCLEROSIS RELAPSE [None]
